FAERS Safety Report 5826567-4 (Version None)
Quarter: 2008Q3

REPORT INFORMATION
  Report Type: 
  Country: None (occurrence: None)
  Receive Date: 20080729
  Receipt Date: 20080723
  Transmission Date: 20090109
  Serious: Yes (Death, Life-Threatening)
  Sender: FDA-Public Use
  Company Number: GB-ELI_LILLY_AND_COMPANY-GB200807004638

PATIENT
  Age: 37 Year
  Sex: Male

DRUGS (3)
  1. HUMATROPE [Suspect]
     Dosage: 0.3 MG, DAILY (1/D)
     Route: 058
     Dates: start: 20050628, end: 20060415
  2. DEXAMETHASONE [Concomitant]
     Dosage: UNK, UNKNOWN
     Route: 065
     Dates: start: 20060531
  3. TEGRETOL [Concomitant]
     Dosage: UNK, UNKNOWN
     Route: 065
     Dates: start: 20060410

REACTIONS (1)
  - PINEAL PARENCHYMAL NEOPLASM MALIGNANT [None]
